FAERS Safety Report 24887525 (Version 1)
Quarter: 2025Q1

REPORT INFORMATION
  Report Type: Spontaneous
  Country: TW (occurrence: TW)
  Receive Date: 20250127
  Receipt Date: 20250127
  Transmission Date: 20250408
  Serious: Yes (Death, Hospitalization, Other)
  Sender: SANOFI AVENTIS
  Company Number: TW-SA-2025SA021953

PATIENT
  Age: 67 Year
  Sex: Male
  Weight: 41.8 kg

DRUGS (25)
  1. CORDARONE [Suspect]
     Active Substance: AMIODARONE HYDROCHLORIDE
     Route: 041
     Dates: start: 20250105, end: 20250106
  2. CORDARONE [Suspect]
     Active Substance: AMIODARONE HYDROCHLORIDE
     Dosage: 200 MG, QD
     Route: 048
     Dates: start: 20250107, end: 20250111
  3. ACETAMINOPHEN [Suspect]
     Active Substance: ACETAMINOPHEN
     Dosage: 500 MG, Q6H
     Route: 048
     Dates: start: 20250108, end: 20250114
  4. FUROSEMIDE [Suspect]
     Active Substance: FUROSEMIDE
     Dosage: 40 MG, QD
     Route: 048
     Dates: start: 20250106, end: 20250109
  5. FAMOTIDINE [Suspect]
     Active Substance: FAMOTIDINE
     Dosage: 20 MG, BID
     Route: 048
     Dates: start: 20250108, end: 20250111
  6. PANTOPRAZOLE SODIUM [Suspect]
     Active Substance: PANTOPRAZOLE SODIUM
     Dosage: 40 MG, QD
     Route: 042
     Dates: start: 20250105, end: 20250107
  7. PANTOPRAZOLE SODIUM [Suspect]
     Active Substance: PANTOPRAZOLE SODIUM
     Dosage: 40 MG, QD
     Route: 042
     Dates: start: 20250111, end: 20250117
  8. TAMSULOSIN HYDROCHLORIDE [Suspect]
     Active Substance: TAMSULOSIN HYDROCHLORIDE
     Dosage: 0.2 MG, QD
     Route: 048
     Dates: start: 20250105, end: 20250110
  9. KEPPRA [Suspect]
     Active Substance: LEVETIRACETAM
     Dosage: 500 MG, BID
     Route: 048
     Dates: start: 20250105, end: 20250110
  10. CEFOPERAZONE SODIUM\SULBACTAM SODIUM [Suspect]
     Active Substance: CEFOPERAZONE SODIUM\SULBACTAM SODIUM
     Dosage: 2 G, BID
     Route: 041
     Dates: start: 20250105, end: 20250110
  11. SEFORCE [Concomitant]
     Dosage: 400 MG, BID
     Route: 041
     Dates: start: 20250110, end: 20250117
  12. RIVOTRIL [Concomitant]
     Active Substance: CLONAZEPAM
     Dosage: 0.5 MG, QD
     Route: 048
     Dates: start: 20250105, end: 20250110
  13. LANOXIN [Concomitant]
     Active Substance: DIGOXIN
     Dosage: 0.5 MG, QD
     Route: 041
     Dates: start: 20250105, end: 20250105
  14. THRONE [Concomitant]
     Dosage: 100 MG, TID
     Route: 048
     Dates: start: 20250105, end: 20250115
  15. Spersin [Concomitant]
     Route: 050
     Dates: start: 20250108, end: 20250114
  16. TOPSYM [Concomitant]
     Dosage: 10 G, QD
     Route: 061
     Dates: start: 20250107, end: 20250110
  17. SENNOSIDES [Concomitant]
     Active Substance: SENNOSIDES
     Dosage: UNK, QD
     Route: 048
     Dates: start: 20250108, end: 20250113
  18. EDOXABAN TOSYLATE [Concomitant]
     Active Substance: EDOXABAN TOSYLATE
     Dosage: 60 MG, QD
     Route: 048
     Dates: start: 20250106, end: 20250114
  19. BISOPROLOL FUMARATE [Concomitant]
     Active Substance: BISOPROLOL FUMARATE
     Dosage: 5 MG, QD
     Route: 048
     Dates: start: 20250106, end: 20250115
  20. LEVEMIR [Concomitant]
     Active Substance: INSULIN DETEMIR
     Dosage: UNK, QD
     Route: 058
     Dates: start: 20250105, end: 20250114
  21. ACTRAPID [Concomitant]
     Active Substance: INSULIN HUMAN
     Route: 058
     Dates: start: 20250105, end: 20250112
  22. LINAGLIPTIN [Concomitant]
     Active Substance: LINAGLIPTIN
     Dosage: 5 MG, QD
     Route: 048
     Dates: start: 20250106, end: 20250113
  23. U CITRA [Concomitant]
     Dosage: 660 MG/G, BID
     Route: 048
     Dates: start: 20250107, end: 20250108
  24. ACETYLCYSTEINE [Concomitant]
     Active Substance: ACETYLCYSTEINE
     Dosage: 600 MG, QD
     Route: 048
     Dates: start: 20250105, end: 20250115
  25. FUMUCIL [Concomitant]
     Dosage: 300 MG, TID
     Route: 055
     Dates: start: 20250106, end: 20250111

REACTIONS (2)
  - Stevens-Johnson syndrome [Fatal]
  - Toxic epidermal necrolysis [Fatal]

NARRATIVE: CASE EVENT DATE: 20250110
